FAERS Safety Report 19697948 (Version 1)
Quarter: 2021Q3

REPORT INFORMATION
  Report Type: Spontaneous
  Country: CN (occurrence: CN)
  Receive Date: 20210812
  Receipt Date: 20210812
  Transmission Date: 20211014
  Serious: Yes (Hospitalization)
  Sender: FDA-Public Use
  Company Number: CN-BAXTER-2021BAX024427

PATIENT
  Age: 39 Year
  Sex: Female
  Weight: 59 kg

DRUGS (8)
  1. 0.9% SODIUM CHLORIDE INJECTION [Suspect]
     Active Substance: SODIUM CHLORIDE
     Dosage: NS40ML + EPIRUBICIN HYDROCHLORIDE FOR INJECTION 50 MG
     Route: 042
     Dates: start: 20210723, end: 20210723
  2. O MINGRUN [DOCETAXEL] [Suspect]
     Active Substance: DOCETAXEL
     Indication: BREAST CANCER METASTATIC
     Dosage: NS100ML +  DOCETAXEL INJECTION 115 MG
     Route: 041
     Dates: start: 20210723, end: 20210723
  3. 0.9% SODIUM CHLORIDE INJECTION [Suspect]
     Active Substance: SODIUM CHLORIDE
     Dosage: NS100ML +  DOCETAXEL INJECTION 115 MG
     Route: 041
     Dates: start: 20210723, end: 20210723
  4. 0.9% SODIUM CHLORIDE INJECTION [Suspect]
     Active Substance: SODIUM CHLORIDE
     Dosage: NS40ML + EPIRUBICIN HYDROCHLORIDE FOR INJECTION 60 MG
     Route: 042
     Dates: start: 20210723, end: 20210723
  5. EPIRUBICIN HYDROCHLORIDE. [Suspect]
     Active Substance: EPIRUBICIN HYDROCHLORIDE
     Indication: BREAST CANCER METASTATIC
     Dosage: NS40ML + EPIRUBICIN HYDROCHLORIDE FOR INJECTION 60 MG
     Route: 042
     Dates: start: 20210723, end: 20210723
  6. ENDOXAN [Suspect]
     Active Substance: CYCLOPHOSPHAMIDE
     Indication: BREAST CANCER METASTATIC
     Dosage: NS 100ML + CYCLOPHOSPHAMIDE POWDER FOR INJECTION 0.75 G
     Route: 041
     Dates: start: 20210723, end: 20210723
  7. 0.9% SODIUM CHLORIDE INJECTION [Suspect]
     Active Substance: SODIUM CHLORIDE
     Indication: MEDICATION DILUTION
     Dosage: NS100ML + CYCLOPHOSPHAMIDE POWDER FOR INJECTION 0.75 G
     Route: 041
     Dates: start: 20210723, end: 20210723
  8. EPIRUBICIN HYDROCHLORIDE. [Suspect]
     Active Substance: EPIRUBICIN HYDROCHLORIDE
     Dosage: NS 40ML + EPIRUBICIN HYDROCHLORIDE FOR INJECTION 50 MG
     Route: 042
     Dates: start: 20210723, end: 20210723

REACTIONS (1)
  - Leukopenia [Unknown]

NARRATIVE: CASE EVENT DATE: 20210726
